FAERS Safety Report 20929097 (Version 1)
Quarter: 2022Q2

REPORT INFORMATION
  Report Type: Report from Study
  Country: IN (occurrence: IN)
  Receive Date: 20220608
  Receipt Date: 20220608
  Transmission Date: 20220721
  Serious: Yes (Hospitalization, Other)
  Sender: FDA-Public Use
  Company Number: IN-Accord-265403

PATIENT
  Age: 30 Year
  Sex: Male

DRUGS (2)
  1. FLUOROURACIL [Suspect]
     Active Substance: FLUOROURACIL
     Indication: Rectal cancer
     Dosage: BIWEEKLY BOLUS: 400 MG/M2 D1, INFUSION: 2400 MG/M2 OVER 48 H)
  2. LEUCOVORIN [Concomitant]
     Active Substance: LEUCOVORIN
     Indication: Rectal cancer
     Dosage: BIWEEKLY

REACTIONS (1)
  - Toxic leukoencephalopathy [Recovered/Resolved]
